FAERS Safety Report 10159111 (Version 2)
Quarter: 2014Q2

REPORT INFORMATION
  Report Type: Spontaneous
  Country: ES (occurrence: ES)
  Receive Date: 20140508
  Receipt Date: 20140521
  Transmission Date: 20141212
  Serious: Yes (Hospitalization)
  Sender: FDA-Public Use
  Company Number: ES-BEH-2014042432

PATIENT
  Age: 46 Year
  Sex: Male
  Weight: 58 kg

DRUGS (18)
  1. PRIVIGEN [Suspect]
     Indication: GRANULOMATOSIS WITH POLYANGIITIS
     Dosage: 30GR 24H X 5 DOSES
     Route: 042
     Dates: end: 20110109
  2. ATORVASTATINE [Concomitant]
     Dosage: 40MG 0-0-1 PO
     Route: 048
  3. CALCIUM CARBONATE [Concomitant]
     Dosage: 500MG/D PO DINNER
  4. CEFTRIAXONE [Concomitant]
     Route: 041
  5. DARTEPOETIN ALFA [Concomitant]
  6. ENALAPRILE [Concomitant]
     Dosage: 10MG 0-0-1 PO
     Route: 048
  7. FUROSEMIDE [Concomitant]
     Dosage: 20MG/8H IV
     Route: 042
  8. GANCICLOVIR [Concomitant]
     Route: 042
  9. INSULIN LISPRO IRG [Concomitant]
  10. IPRATROPIUM [Concomitant]
  11. LEVOFLOXACINE [Concomitant]
  12. LOSARTAN [Concomitant]
     Route: 048
  13. METHYLPREDNISOLONE [Concomitant]
     Route: 042
  14. OMEPRAZOLE [Concomitant]
     Route: 042
  15. ACETAMINOPHEN [Concomitant]
     Route: 042
  16. SALBUTAMOLE [Concomitant]
     Dosage: INH/8H
     Route: 055
  17. SULPHAMETOXAZOLE/TRIMETROPIN [Concomitant]
     Dosage: 1 U PER 48H
  18. CALCITRIOL [Concomitant]

REACTIONS (1)
  - Acute coronary syndrome [Recovered/Resolved]
